FAERS Safety Report 18405407 (Version 1)
Quarter: 2020Q4

REPORT INFORMATION
  Report Type: Spontaneous
  Country: US (occurrence: US)
  Receive Date: 20201020
  Receipt Date: 20201020
  Transmission Date: 20210114
  Serious: Yes (Other)
  Sender: FDA-Public Use
  Company Number: None

PATIENT
  Age: 76 Year
  Sex: Male
  Weight: 38 kg

DRUGS (10)
  1. VANCOMYCIN [Concomitant]
     Active Substance: VANCOMYCIN
     Dates: start: 20201002
  2. ATORVASTATIN [Concomitant]
     Active Substance: ATORVASTATIN
     Dates: start: 20201002
  3. ENOXAPARIN [Concomitant]
     Active Substance: ENOXAPARIN
  4. LEXAPRO [Concomitant]
     Active Substance: ESCITALOPRAM OXALATE
     Dates: start: 20201002
  5. REMDESIVIR. [Suspect]
     Active Substance: REMDESIVIR
     Indication: COVID-19
     Dosage: ?          OTHER FREQUENCY:ONCE;?
     Route: 042
  6. TORSEMIDE. [Concomitant]
     Active Substance: TORSEMIDE
  7. DEXAMETHASONE. [Concomitant]
     Active Substance: DEXAMETHASONE
  8. CEFEPIME [Concomitant]
     Active Substance: CEFEPIME HYDROCHLORIDE
     Dates: start: 20201002
  9. TOCILIZUMAB. [Concomitant]
     Active Substance: TOCILIZUMAB
     Dates: start: 20201003, end: 20201003
  10. DRONEDARONE [Concomitant]
     Active Substance: DRONEDARONE
     Dates: start: 20201002

REACTIONS (4)
  - Aspartate aminotransferase increased [None]
  - Alanine aminotransferase increased [None]
  - Hypoperfusion [None]
  - Hypotension [None]

NARRATIVE: CASE EVENT DATE: 20201003
